FAERS Safety Report 19982871 (Version 3)
Quarter: 2021Q4

REPORT INFORMATION
  Report Type: Spontaneous
  Country: US (occurrence: US)
  Receive Date: 20211021
  Receipt Date: 20211223
  Transmission Date: 20220303
  Serious: Yes (Hospitalization, Other)
  Sender: FDA-Public Use
  Company Number: US-BAYER-2021A216707

PATIENT
  Age: 60 Year
  Sex: Male

DRUGS (1)
  1. KERENDIA [Suspect]
     Active Substance: FINERENONE
     Dosage: UNK
     Dates: start: 20210911, end: 20210921

REACTIONS (3)
  - Swelling face [Recovered/Resolved]
  - Urticaria [None]
  - Pruritus [Recovered/Resolved]

NARRATIVE: CASE EVENT DATE: 20210921
